FAERS Safety Report 4723835-4 (Version None)
Quarter: 2005Q3

REPORT INFORMATION
  Report Type: 
  Country: None (occurrence: None)
  Receive Date: 20050721
  Receipt Date: 20050503
  Transmission Date: 20060218
  Serious: Yes (Other)
  Sender: FDA-Public Use
  Company Number: COT_0054_2005

PATIENT
  Age: 16 Year
  Sex: Female
  Weight: 43.5453 kg

DRUGS (6)
  1. ILOPROST [Suspect]
     Indication: PULMONARY HYPERTENSION
     Dosage: 5 MCG Q4HR IH
     Route: 055
     Dates: start: 20050413, end: 20050413
  2. ILOPROST [Suspect]
     Indication: PULMONARY HYPERTENSION
     Dosage: 2.5 MCG ONCE IH
     Route: 055
     Dates: start: 20050413, end: 20050413
  3. ILOPROST [Suspect]
     Indication: PULMONARY HYPERTENSION
     Dosage: 2.5 MCG Q4HR IH
     Route: 055
     Dates: start: 20050414, end: 20050414
  4. ILOPROST [Suspect]
     Indication: PULMONARY HYPERTENSION
     Dosage: 5 MG QDAY IH
     Route: 055
     Dates: start: 20050415, end: 20050415
  5. TRACLEER [Concomitant]
  6. VIAGRA [Concomitant]

REACTIONS (11)
  - BLOOD PRESSURE DIASTOLIC DECREASED [None]
  - BRONCHOSPASM [None]
  - CHEST PAIN [None]
  - COUGH [None]
  - DYSPNOEA [None]
  - FEELING ABNORMAL [None]
  - FORCED EXPIRATORY VOLUME DECREASED [None]
  - HEART RATE INCREASED [None]
  - OBSTRUCTIVE AIRWAYS DISORDER [None]
  - OXYGEN SATURATION DECREASED [None]
  - PARAESTHESIA [None]
